FAERS Safety Report 4310984-8 (Version None)
Quarter: 2004Q1

REPORT INFORMATION
  Report Type: 
  Country: None (occurrence: None)
  Receive Date: 20040302
  Receipt Date: 20040302
  Transmission Date: 20041129
  Serious: Yes (Life-Threatening)
  Sender: FDA-Public Use
  Company Number: None

PATIENT
  Sex: Male
  Weight: 115.6672 kg

DRUGS (8)
  1. EFFEXOR XR [Suspect]
     Dosage: PROVIDED IN
     Dates: start: 20030430, end: 20040221
  2. ZYPREXA [Suspect]
     Indication: MENTAL DISORDER
     Dosage: PROVED IN
  3. HYDROCODONE [Suspect]
  4. NEURONTIN [Suspect]
  5. AMBIEN [Suspect]
  6. OXYCONTIN [Suspect]
  7. OXYCODONE AND ACETAMINOPHEN [Concomitant]
  8. DURAGESIC [Concomitant]

REACTIONS (5)
  - BACK PAIN [None]
  - DRUG DEPENDENCE [None]
  - INFECTION [None]
  - MENTAL DISORDER [None]
  - PAIN [None]
